FAERS Safety Report 9782107 (Version 4)
Quarter: 2014Q1

REPORT INFORMATION
  Report Type: Report from Study
  Country: CA (occurrence: CA)
  Receive Date: 20131226
  Receipt Date: 20140113
  Transmission Date: 20141002
  Serious: Yes (Hospitalization, Other)
  Sender: FDA-Public Use
  Company Number: CA-ROCHE-1309468

PATIENT
  Age: 25 Year
  Sex: Female
  Weight: 70.4 kg

DRUGS (4)
  1. AVASTIN [Suspect]
     Indication: GLIOBLASTOMA
     Route: 042
     Dates: start: 20131114, end: 20131211
  2. KEPPRA [Concomitant]
     Route: 065
  3. TEMODAL [Concomitant]
     Dosage: FOR 6 MONTHS
     Route: 065
     Dates: start: 201209
  4. MARIJUANA [Concomitant]
     Dosage: MEDICAL MARIJUANA
     Route: 065
     Dates: start: 20131113

REACTIONS (5)
  - Convulsion [Unknown]
  - Nuclear magnetic resonance imaging abnormal [Unknown]
  - Mobility decreased [Unknown]
  - Cough [Not Recovered/Not Resolved]
  - Drug ineffective [Unknown]
